FAERS Safety Report 22297063 (Version 8)
Quarter: 2023Q2

REPORT INFORMATION
  Report Type: Spontaneous
  Country: US (occurrence: US)
  Receive Date: 20230509
  Receipt Date: 20230617
  Transmission Date: 20230721
  Serious: Yes (Other)
  Sender: FDA-Public Use
  Company Number: US-UNITED THERAPEUTICS-UNT-2023-012749

PATIENT
  Age: 55 Year
  Sex: Female
  Weight: 86.168 kg

DRUGS (6)
  1. TYVASO [Suspect]
     Active Substance: TREPROSTINIL
     Indication: Pulmonary arterial hypertension
     Dosage: 54 ?G, QID
  2. TYVASO [Suspect]
     Active Substance: TREPROSTINIL
     Dosage: UNK
  3. TYVASO [Suspect]
     Active Substance: TREPROSTINIL
     Dosage: UNK
     Dates: start: 20220208
  4. NYSTATIN [Suspect]
     Active Substance: NYSTATIN
     Indication: Candida infection
     Dosage: UNK
     Route: 065
  5. LETAIRIS [Concomitant]
     Active Substance: AMBRISENTAN
     Indication: Product used for unknown indication
     Dosage: UNK
     Route: 065
  6. REVATIO [Concomitant]
     Active Substance: SILDENAFIL CITRATE
     Indication: Product used for unknown indication
     Dosage: UNK
     Route: 065

REACTIONS (16)
  - Systemic lupus erythematosus [Unknown]
  - Infection [Unknown]
  - Fatigue [Unknown]
  - Drug hypersensitivity [Unknown]
  - Headache [Unknown]
  - Dyspepsia [Unknown]
  - Gastrooesophageal reflux disease [Unknown]
  - Stress [Unknown]
  - Pain [Unknown]
  - Bite [Unknown]
  - Depressed mood [Unknown]
  - Burning sensation [Unknown]
  - Weight decreased [Unknown]
  - Candida infection [Unknown]
  - Oral infection [Unknown]
  - Feeling jittery [Unknown]

NARRATIVE: CASE EVENT DATE: 20230501
